FAERS Safety Report 7320707-6 (Version None)
Quarter: 2011Q1

REPORT INFORMATION
  Report Type: 
  Country: None (occurrence: None)
  Receive Date: 20110228
  Receipt Date: 20110222
  Transmission Date: 20110831
  Serious: Yes (Hospitalization, Other)
  Sender: FDA-Public Use
  Company Number: JP-PFIZER INC-2010173083

PATIENT
  Age: 65 Year
  Sex: Female
  Weight: 59.2 kg

DRUGS (5)
  1. ASTOMIN [Concomitant]
     Indication: BRONCHITIS
     Dosage: UNK
     Route: 048
     Dates: start: 20101122, end: 20101206
  2. MUCODYNE [Concomitant]
     Indication: BRONCHITIS
     Dosage: UNK
     Route: 048
     Dates: start: 20101122, end: 20101206
  3. CADUET [Suspect]
     Indication: HYPERTENSION
     Dosage: UNK
     Route: 048
     Dates: start: 20100520, end: 20101207
  4. GARENOXACIN MESILATE [Concomitant]
     Indication: BRONCHITIS
     Dosage: UNK
     Route: 048
     Dates: start: 20101122, end: 20101128
  5. CADUET [Suspect]
     Indication: HYPERCHOLESTEROLAEMIA

REACTIONS (13)
  - HEPATIC FUNCTION ABNORMAL [None]
  - BLOOD LACTATE DEHYDROGENASE INCREASED [None]
  - HAEMATURIA [None]
  - ASPARTATE AMINOTRANSFERASE INCREASED [None]
  - LEUCINE AMINOPEPTIDASE INCREASED [None]
  - BILIRUBIN CONJUGATED INCREASED [None]
  - BLOOD ALKALINE PHOSPHATASE INCREASED [None]
  - NEPHROLITHIASIS [None]
  - BLOOD BILIRUBIN INCREASED [None]
  - ALANINE AMINOTRANSFERASE INCREASED [None]
  - GAMMA-GLUTAMYLTRANSFERASE INCREASED [None]
  - BLOOD CREATINE PHOSPHOKINASE INCREASED [None]
  - COUGH [None]
